FAERS Safety Report 20773404 (Version 1)
Quarter: 2022Q2

REPORT INFORMATION
  Report Type: Report from Study
  Country: US (occurrence: US)
  Receive Date: 20220502
  Receipt Date: 20220502
  Transmission Date: 20220721
  Serious: Yes (Death, Other)
  Sender: FDA-Public Use
  Company Number: US-ELI_LILLY_AND_COMPANY-US202201005281

PATIENT
  Sex: Male
  Weight: 91.62 kg

DRUGS (36)
  1. ZYPREXA RELPREVV [Suspect]
     Active Substance: OLANZAPINE PAMOATE
     Indication: Product used for unknown indication
     Dosage: 210 MG, UNKNOWN
     Route: 030
     Dates: start: 20210921, end: 20210921
  2. ZYPREXA RELPREVV [Suspect]
     Active Substance: OLANZAPINE PAMOATE
     Indication: Product used for unknown indication
     Dosage: 210 MG, UNKNOWN
     Route: 030
     Dates: start: 20210921, end: 20210921
  3. ZYPREXA RELPREVV [Suspect]
     Active Substance: OLANZAPINE PAMOATE
     Indication: Product used for unknown indication
     Dosage: 210 MG, UNKNOWN
     Route: 030
     Dates: start: 20210921, end: 20210921
  4. ZYPREXA RELPREVV [Suspect]
     Active Substance: OLANZAPINE PAMOATE
     Dosage: 210 MG, UNKNOWN
     Route: 030
     Dates: start: 20210924, end: 20210925
  5. ZYPREXA RELPREVV [Suspect]
     Active Substance: OLANZAPINE PAMOATE
     Dosage: 210 MG, UNKNOWN
     Route: 030
     Dates: start: 20210924, end: 20210925
  6. ZYPREXA RELPREVV [Suspect]
     Active Substance: OLANZAPINE PAMOATE
     Dosage: 210 MG, UNKNOWN
     Route: 030
     Dates: start: 20210924, end: 20210925
  7. ZYPREXA RELPREVV [Suspect]
     Active Substance: OLANZAPINE PAMOATE
     Dosage: 210 MG, DAILY
     Route: 030
     Dates: start: 20210925, end: 20210927
  8. ZYPREXA RELPREVV [Suspect]
     Active Substance: OLANZAPINE PAMOATE
     Dosage: 210 MG, DAILY
     Route: 030
     Dates: start: 20210925, end: 20210927
  9. ZYPREXA RELPREVV [Suspect]
     Active Substance: OLANZAPINE PAMOATE
     Dosage: 210 MG, DAILY
     Route: 030
     Dates: start: 20210925, end: 20210927
  10. SCOPOLAMINE [Concomitant]
     Active Substance: SCOPOLAMINE
     Indication: Product used for unknown indication
     Dosage: 1 DOSAGE FORM, UNKNOWN
     Route: 062
     Dates: start: 20210927, end: 20210927
  11. HALDOL [HALOPERIDOL LACTATE] [Concomitant]
     Indication: Product used for unknown indication
     Dosage: 1 MG, UNKNOWN
     Route: 030
     Dates: start: 20210924, end: 20210929
  12. HALDOL [HALOPERIDOL LACTATE] [Concomitant]
     Dosage: 0.4 ML, UNKNOWN
     Route: 030
     Dates: start: 20210922, end: 20210922
  13. MORPHINE SULFATE [Concomitant]
     Active Substance: MORPHINE SULFATE
     Indication: Product used for unknown indication
     Dosage: 2 MG, UNKNOWN
     Route: 058
     Dates: start: 20210819, end: 20210915
  14. MORPHINE SULFATE [Concomitant]
     Active Substance: MORPHINE SULFATE
     Dosage: 4 MG, UNKNOWN
     Route: 058
     Dates: start: 20210915, end: 20210920
  15. MORPHINE SULFATE [Concomitant]
     Active Substance: MORPHINE SULFATE
     Dosage: 8 MG, UNKNOWN
     Route: 058
     Dates: start: 20210920, end: 20210921
  16. MORPHINE SULFATE [Concomitant]
     Active Substance: MORPHINE SULFATE
     Dosage: 8 MG, UNKNOWN
     Route: 058
     Dates: start: 20210921, end: 20210927
  17. FENTANYL [Concomitant]
     Active Substance: FENTANYL
     Indication: Product used for unknown indication
     Dosage: 1 DOSAGE FORM, UNKNOWN
     Route: 062
     Dates: start: 20210919, end: 20210920
  18. FENTANYL [Concomitant]
     Active Substance: FENTANYL
     Dosage: 1 DOSAGE FORM, UNKNOWN
     Route: 062
     Dates: start: 20210919, end: 20210927
  19. FENTANYL [Concomitant]
     Active Substance: FENTANYL
     Dosage: 1 DOSAGE FORM, UNKNOWN
     Route: 062
     Dates: start: 20210920, end: 20210927
  20. ZOFRAN [Concomitant]
     Active Substance: ONDANSETRON HYDROCHLORIDE
     Indication: Product used for unknown indication
     Dosage: 4 MG, UNKNOWN
     Route: 048
     Dates: start: 20210915, end: 20210916
  21. ZOFRAN [Concomitant]
     Active Substance: ONDANSETRON HYDROCHLORIDE
     Dosage: 4 MG, UNKNOWN
     Route: 048
     Dates: start: 20210916, end: 20210927
  22. HUMALOG [Concomitant]
     Active Substance: INSULIN LISPRO
     Indication: Product used for unknown indication
     Dosage: 15 U, UNKNOWN
     Route: 058
     Dates: start: 20210815, end: 20210815
  23. HUMALOG [Concomitant]
     Active Substance: INSULIN LISPRO
     Dosage: 15 U, UNKNOWN
     Route: 058
     Dates: start: 20210816, end: 20210914
  24. HUMALOG [Concomitant]
     Active Substance: INSULIN LISPRO
     Dosage: 20 U, UNKNOWN
     Route: 058
     Dates: start: 20210914, end: 20210915
  25. HUMALOG [Concomitant]
     Active Substance: INSULIN LISPRO
     Dosage: 20 U, UNKNOWN
     Route: 058
     Dates: start: 20210915, end: 20210915
  26. HUMALOG [Concomitant]
     Active Substance: INSULIN LISPRO
     Dosage: UNK UNK, UNKNOWN
     Route: 065
     Dates: start: 20210916, end: 20210927
  27. POTASSIUM CHLORIDE [Concomitant]
     Active Substance: POTASSIUM CHLORIDE
     Indication: Product used for unknown indication
     Dosage: 1 DOSAGE FORM, BID
     Route: 048
     Dates: start: 20210902, end: 20210902
  28. POTASSIUM CHLORIDE [Concomitant]
     Active Substance: POTASSIUM CHLORIDE
     Dosage: 1 DOSAGE FORM, BID
     Route: 048
     Dates: start: 20210902, end: 20210916
  29. SINEMET [Concomitant]
     Active Substance: CARBIDOPA\LEVODOPA
     Indication: Product used for unknown indication
     Dosage: 1 DOSAGE FORM, BID
     Route: 048
     Dates: start: 20210902, end: 20210916
  30. LEVEMIR [Concomitant]
     Active Substance: INSULIN DETEMIR
     Indication: Product used for unknown indication
     Dosage: 32 U, UNKNOWN
     Route: 058
     Dates: start: 20210813, end: 20210901
  31. LEVEMIR [Concomitant]
     Active Substance: INSULIN DETEMIR
     Dosage: 24 U, UNKNOWN
     Route: 058
     Dates: start: 20210901, end: 20210915
  32. IMODIUM [Concomitant]
     Active Substance: LOPERAMIDE HYDROCHLORIDE
     Indication: Product used for unknown indication
     Dosage: 2 DOSAGE FORM, UNKNOWN
     Route: 048
     Dates: start: 20210827, end: 20210828
  33. SENNA PLUS [Concomitant]
     Active Substance: DOCUSATE SODIUM\SENNOSIDES\SENNOSIDES A AND B
     Indication: Product used for unknown indication
     Dosage: 2 DOSAGE FORM, UNKNOWN
     Route: 048
     Dates: start: 20210826, end: 20210827
  34. LINZESS [Concomitant]
     Active Substance: LINACLOTIDE
     Indication: Product used for unknown indication
     Dosage: 1 DOSAGE FORM, UNKNOWN
     Route: 048
     Dates: start: 20210826, end: 20210827
  35. DEXTROSE [Concomitant]
     Active Substance: DEXTROSE
     Indication: Product used for unknown indication
     Dosage: 32 ML, UNKNOWN
     Route: 048
     Dates: start: 20210818, end: 20210818
  36. REGLAN [Concomitant]
     Active Substance: METOCLOPRAMIDE HYDROCHLORIDE
     Indication: Product used for unknown indication
     Dosage: 1 DOSAGE FORM, BID
     Route: 048
     Dates: start: 20210608, end: 20210816

REACTIONS (6)
  - Rectal cancer [Fatal]
  - Metastases to liver [Fatal]
  - Loss of consciousness [Unknown]
  - Blood pressure decreased [Unknown]
  - Illness [Unknown]
  - Dysphagia [Unknown]
